FAERS Safety Report 10799866 (Version 1)
Quarter: 2015Q1

REPORT INFORMATION
  Report Type: Spontaneous
  Country: US (occurrence: US)
  Receive Date: 20150216
  Receipt Date: 20150216
  Transmission Date: 20150721
  Serious: No
  Sender: FDA-Public Use
  Company Number: US-ALLERGAN-1417742US

PATIENT
  Age: 83 Year
  Sex: Female

DRUGS (18)
  1. LISINOPRIL. [Concomitant]
     Active Substance: LISINOPRIL
     Dosage: 40 MG, BID
     Route: 048
  2. AMLODIPINE BESYLATE. [Concomitant]
     Active Substance: AMLODIPINE BESYLATE
     Dosage: 2.5 MG, UNK
     Route: 048
  3. ASA [Concomitant]
     Active Substance: ASPIRIN
     Indication: CARDIAC DISORDER
  4. PROBIOTICS [Concomitant]
     Active Substance: PROBIOTICS NOS
  5. REFRESH CELLUVISC [Concomitant]
     Active Substance: CARBOXYMETHYLCELLULOSE SODIUM
     Indication: PRODUCT USED FOR UNKNOWN INDICATION
  6. AZOPT [Concomitant]
     Active Substance: BRINZOLAMIDE
  7. RESTASIS [Suspect]
     Active Substance: CYCLOSPORINE
     Indication: DRY EYE
     Dosage: 2 GTT, BID
     Route: 047
  8. HYDRALAZINE [Concomitant]
     Active Substance: HYDRALAZINE HYDROCHLORIDE
     Dosage: 50 MG, BID
     Route: 048
  9. DIGOXIN. [Concomitant]
     Active Substance: DIGOXIN
     Dosage: 125 MG, UNK
     Route: 048
  10. LETROZOLE. [Concomitant]
     Active Substance: LETROZOLE
     Indication: BREAST CANCER
  11. LUMIGAN [Suspect]
     Active Substance: BIMATOPROST
     Indication: GLAUCOMA
     Dosage: 2 GTT, QHS
     Route: 047
  12. PRAVASTATIN [Concomitant]
     Active Substance: PRAVASTATIN\PRAVASTATIN SODIUM
     Dosage: 20 MG, UNK
     Route: 048
  13. SOTALOL. [Concomitant]
     Active Substance: SOTALOL
     Dosage: 120 MG, BID
     Route: 048
  14. WARFARIN [Concomitant]
     Active Substance: WARFARIN
     Dosage: 5 MG, 3 DAYS WEEKLY
  15. MULTIVITAMINS [Concomitant]
     Active Substance: VITAMINS
  16. CHONDROITIN SULFATE (BOVINE)\GLUCOSAMINE SULFATE [Concomitant]
     Active Substance: CHONDROITIN SULFATE (BOVINE)\GLUCOSAMINE SULFATE
  17. WARFARIN [Concomitant]
     Active Substance: WARFARIN
     Dosage: 2.5 MG, 3 DAYS WEEKLY
  18. REFRESH PLUS [Concomitant]
     Active Substance: CARBOXYMETHYLCELLULOSE SODIUM
     Indication: PRODUCT USED FOR UNKNOWN INDICATION

REACTIONS (2)
  - Eye infection [Unknown]
  - Eye haemorrhage [Unknown]

NARRATIVE: CASE EVENT DATE: 20140805
